FAERS Safety Report 9529911 (Version 1)
Quarter: 2013Q3

REPORT INFORMATION
  Report Type: Report from Study
  Country: JP (occurrence: JP)
  Receive Date: 20130917
  Receipt Date: 20130917
  Transmission Date: 20140515
  Serious: No
  Sender: FDA-Public Use
  Company Number: JP-ACTELION-A-CH2013-88244

PATIENT
  Age: 28 Year
  Sex: Male
  Weight: 53.7 kg

DRUGS (6)
  1. ACT-293987 [Suspect]
     Indication: PULMONARY ARTERIAL HYPERTENSION
     Dosage: 1200 ?G, BID
     Route: 048
     Dates: start: 20121122
  2. ACT-293987 [Suspect]
     Dosage: 1000 ?G, BID
     Route: 048
     Dates: start: 20120614, end: 20121121
  3. TRACLEER [Suspect]
     Indication: PULMONARY ARTERIAL HYPERTENSION
     Dosage: UNK
     Route: 048
     Dates: start: 20120105
  4. ADCIRCA [Concomitant]
     Dosage: UNK
     Dates: start: 20120112
  5. WARFARIN POTASSIUM [Concomitant]
     Dosage: UNK
     Dates: start: 20111216
  6. FAMOTIDINE [Concomitant]
     Dosage: UNK
     Dates: start: 20121221

REACTIONS (1)
  - Pregnancy of partner [Unknown]
